FAERS Safety Report 13553697 (Version 2)
Quarter: 2017Q3

REPORT INFORMATION
  Report Type: Spontaneous
  Country: US (occurrence: US)
  Receive Date: 20170517
  Receipt Date: 20170724
  Transmission Date: 20171127
  Serious: Yes (Other)
  Sender: FDA-Public Use
  Company Number: US-TEVA-761755USA

PATIENT
  Sex: Female

DRUGS (4)
  1. CALCIUM [Concomitant]
     Active Substance: CALCIUM
     Dosage: 1300  DAILY;
  2. RISEDRONIC ACID [Suspect]
     Active Substance: RISEDRONIC ACID
     Indication: OSTEOPOROSIS
     Dosage: ONCE A WEEK
     Route: 048
     Dates: start: 20170411, end: 20170411
  3. CENTRUM SILVER [Concomitant]
     Active Substance: MINERALS\VITAMINS
     Route: 048
  4. VITAMIN D3 [Concomitant]
     Active Substance: CHOLECALCIFEROL
     Dosage: 5000

REACTIONS (9)
  - Back pain [Unknown]
  - Muscle tightness [Unknown]
  - Feeling hot [Unknown]
  - Gait inability [Recovered/Resolved]
  - Musculoskeletal pain [Unknown]
  - Gait disturbance [Recovered/Resolved]
  - Diarrhoea [Not Recovered/Not Resolved]
  - Pain in extremity [Recovered/Resolved]
  - Gastrointestinal sounds abnormal [Unknown]

NARRATIVE: CASE EVENT DATE: 201704
